FAERS Safety Report 7115339-9 (Version None)
Quarter: 2010Q4

REPORT INFORMATION
  Report Type: 
  Country: None (occurrence: None)
  Receive Date: 20101122
  Receipt Date: 20101117
  Transmission Date: 20110411
  Serious: Yes (Hospitalization)
  Sender: FDA-Public Use
  Company Number: US-BRISTOL-MYERS SQUIBB COMPANY-15329543

PATIENT
  Age: 82 Year
  Sex: Male
  Weight: 67 kg

DRUGS (5)
  1. COUMADIN [Suspect]
     Indication: ATRIAL FIBRILLATION
     Route: 048
     Dates: start: 20021015
  2. PLAVIX [Suspect]
     Dosage: STARTED 3 WEEKS AGO
     Dates: start: 20100901
  3. ASPIRIN [Suspect]
  4. COREG [Concomitant]
  5. FUROSEMIDE [Concomitant]

REACTIONS (9)
  - ANAEMIA [None]
  - CHEST PAIN [None]
  - DYSPNOEA [None]
  - FAECES DISCOLOURED [None]
  - FATIGUE [None]
  - FEELING ABNORMAL [None]
  - GASTRITIS [None]
  - HAEMOGLOBIN DECREASED [None]
  - INSOMNIA [None]
